FAERS Safety Report 8646895 (Version 3)
Quarter: 2012Q4

REPORT INFORMATION
  Report Type: 
  Country: US (occurrence: US)
  Receive Date: 20120703
  Receipt Date: 20120912
  Transmission Date: 20130627
  Serious: No
  Sender: FDA-Public Use
  Company Number: US-PFIZER INC-2012155116

PATIENT
  Age: 48 Year
  Sex: Female

DRUGS (21)
  1. SOMAVERT [Suspect]
     Indication: ACROMEGALY
     Dosage: 10 mg, twice weekly (on Monday and Thursday)
     Route: 058
     Dates: start: 20110419, end: 20120825
  2. ABILIFY [Concomitant]
     Dosage: 10 mg, 1x/day, every morning
     Route: 048
  3. CLONAZEPAM [Concomitant]
     Dosage: 2 mg, 2x/day
     Route: 048
  4. CLONIDINE [Concomitant]
     Dosage: 0.2 mg, 2x/day
     Route: 048
  5. DESIPRAMINE [Concomitant]
     Dosage: 50 mg, 4x/day (4 tablets at bedtime)
     Route: 048
  6. DOXYCYCLINE HYCLATE [Concomitant]
     Dosage: 100 mg, 2x/day (every twelve hours)
     Route: 048
  7. ERGOCALCIFEROL [Concomitant]
     Indication: VITAMIN D DEFICIENCY
     Dosage: 50000 unit (1 capsule), every seven days
     Route: 048
  8. PROMETRIUM [Concomitant]
     Indication: MENOPAUSAL SYMPTOMS
     Dosage: 100 mg, 1x/day (in the evening)
     Route: 048
  9. FLONASE [Concomitant]
     Dosage: 50 mcg/actuation nasal spray, 2 sprays into each nostril once daily
  10. HYDROCORTISONE [Concomitant]
     Dosage: 10 mg, 2x/day
     Route: 048
  11. HYDROCORTISONE SODIUM SUCCINATE [Concomitant]
     Dosage: 100 mg/2 mL
     Route: 042
  12. IBUPROFEN [Concomitant]
     Dosage: 800 mg, every six hours, as needed
     Route: 048
  13. SOMATULINE DEPOT [Concomitant]
     Dosage: 120 mg/0.5 mL, 0.5 mL every four weeks
     Route: 058
  14. LEVOTHYROXINE [Concomitant]
     Indication: HYPOTHYROIDISM
     Dosage: 125 ug, 1x/day
     Route: 048
  15. CLARITIN [Concomitant]
     Dosage: once daily as needed
     Route: 048
  16. OCTREOTIDE [Concomitant]
     Indication: MIGRAINE
     Dosage: 0.1 ml as needed
     Route: 058
  17. OCTREOTIDE [Concomitant]
     Indication: HEADACHE
  18. OMEPRAZOLE [Concomitant]
     Dosage: 20 mg, 1x/day
     Route: 048
  19. PEPPERMINT OIL [Concomitant]
     Dosage: 10 ml, as needed
     Route: 048
  20. SUDOGEST [Concomitant]
     Dosage: 30 mg, every six hours as needed
     Route: 048
  21. ESTRADIOL [Concomitant]
     Dosage: 1 mg, 1x/day
     Route: 048

REACTIONS (4)
  - Influenza like illness [Recovered/Resolved]
  - Fatigue [Unknown]
  - Depression [Unknown]
  - Dizziness [Unknown]
